FAERS Safety Report 19370989 (Version 1)
Quarter: 2021Q2

REPORT INFORMATION
  Report Type: Report from Study
  Country: FR (occurrence: FR)
  Receive Date: 20210603
  Receipt Date: 20210603
  Transmission Date: 20210717
  Serious: Yes (Hospitalization, Other)
  Sender: FDA-Public Use
  Company Number: FR-TAKEDA-2021TUS033738

PATIENT
  Age: 33 Year
  Sex: Female

DRUGS (20)
  1. TEDUGLUTIDE [Suspect]
     Active Substance: TEDUGLUTIDE
     Dosage: 2.800 MILLIGRAM (0.05 MG/KG), QD
     Route: 065
     Dates: start: 20181126, end: 20190614
  2. TEDUGLUTIDE [Suspect]
     Active Substance: TEDUGLUTIDE
     Dosage: 2.600 MILLIGRAM (0.05 MG/KG), QD
     Route: 065
     Dates: start: 20190615, end: 20191001
  3. VITAMIN D [Concomitant]
     Active Substance: VITAMIN D NOS
     Indication: VITAMIN D DEFICIENCY
     Dosage: 1 DOSAGE FORM (AMP), QD
     Route: 048
     Dates: start: 20200606
  4. TEDUGLUTIDE [Suspect]
     Active Substance: TEDUGLUTIDE
     Indication: PRODUCT USED FOR UNKNOWN INDICATION
     Dosage: 2.600 MILLIGRAM (0.05 MG/KG), QD
     Route: 065
     Dates: start: 20180217, end: 20180607
  5. TEDUGLUTIDE [Suspect]
     Active Substance: TEDUGLUTIDE
     Dosage: 2.900 MILLIGRAM (0.05 MG/KG), QD
     Route: 065
     Dates: start: 20180608, end: 20181125
  6. TEDUGLUTIDE [Suspect]
     Active Substance: TEDUGLUTIDE
     Dosage: 2.600 MILLIGRAM (0.05 MG/KG), QD
     Route: 065
     Dates: start: 20190615, end: 20191001
  7. TEDUGLUTIDE [Suspect]
     Active Substance: TEDUGLUTIDE
     Indication: PRODUCT USED FOR UNKNOWN INDICATION
     Dosage: 2.600 MILLIGRAM (0.05 MG/KG), QD
     Route: 065
     Dates: start: 20180217, end: 20180607
  8. TEDUGLUTIDE [Suspect]
     Active Substance: TEDUGLUTIDE
     Indication: PRODUCT USED FOR UNKNOWN INDICATION
     Dosage: 2.600 MILLIGRAM (0.05 MG/KG), QD
     Route: 065
     Dates: start: 20180217, end: 20180607
  9. TEDUGLUTIDE [Suspect]
     Active Substance: TEDUGLUTIDE
     Dosage: 2.900 MILLIGRAM (0.05 MG/KG), QD
     Route: 065
     Dates: start: 20180608, end: 20181125
  10. TEDUGLUTIDE [Suspect]
     Active Substance: TEDUGLUTIDE
     Dosage: 2.900 MILLIGRAM (0.05 MG/KG), QD
     Route: 065
     Dates: start: 20180608, end: 20181125
  11. INNOHEP [Concomitant]
     Active Substance: TINZAPARIN SODIUM
     Indication: SEPSIS
     Dosage: 0.50 MILLILITER, QD
     Route: 065
     Dates: start: 20210205
  12. TEDUGLUTIDE [Suspect]
     Active Substance: TEDUGLUTIDE
     Dosage: 2.900 MILLIGRAM (0.05 MG/KG), QD
     Route: 065
     Dates: start: 20180608, end: 20181125
  13. TEDUGLUTIDE [Suspect]
     Active Substance: TEDUGLUTIDE
     Dosage: 2.800 MILLIGRAM (0.05 MG/KG), QD
     Route: 065
     Dates: start: 20181126, end: 20190614
  14. TEDUGLUTIDE [Suspect]
     Active Substance: TEDUGLUTIDE
     Dosage: 2.600 MILLIGRAM (0.05 MG/KG), QD
     Route: 065
     Dates: start: 20190615, end: 20191001
  15. TEDUGLUTIDE [Suspect]
     Active Substance: TEDUGLUTIDE
     Indication: PRODUCT USED FOR UNKNOWN INDICATION
     Dosage: 2.600 MILLIGRAM (0.05 MG/KG), QD
     Route: 065
     Dates: start: 20180217, end: 20180607
  16. LEVOCARNIL [Concomitant]
     Active Substance: LEVOCARNITINE
     Indication: CARNITINE DEFICIENCY
     Dosage: 1 DOSAGE FORM (AMP), TID
     Route: 048
     Dates: start: 20200606
  17. TEDUGLUTIDE [Suspect]
     Active Substance: TEDUGLUTIDE
     Dosage: 2.800 MILLIGRAM (0.05 MG/KG), QD
     Route: 065
     Dates: start: 20181126, end: 20190614
  18. ORBENINE [Concomitant]
     Active Substance: CLOXACILLIN SODIUM
     Indication: SEPSIS
     Dosage: 2 GRAM, 5X/DAY
     Route: 042
     Dates: start: 20210201, end: 20210205
  19. TEDUGLUTIDE [Suspect]
     Active Substance: TEDUGLUTIDE
     Dosage: 2.800 MILLIGRAM (0.05 MG/KG), QD
     Route: 065
     Dates: start: 20181126, end: 20190614
  20. TEDUGLUTIDE [Suspect]
     Active Substance: TEDUGLUTIDE
     Dosage: 2.600 MILLIGRAM (0.05 MG/KG), QD
     Route: 065
     Dates: start: 20190615, end: 20191001

REACTIONS (1)
  - Sepsis [Recovered/Resolved]

NARRATIVE: CASE EVENT DATE: 202101
